FAERS Safety Report 6297488-0 (Version None)
Quarter: 2009Q3

REPORT INFORMATION
  Report Type: 
  Country: None (occurrence: None)
  Receive Date: 20090804
  Receipt Date: 20090804
  Transmission Date: 20100115
  Serious: Yes (Hospitalization)
  Sender: FDA-Public Use
  Company Number: None

PATIENT
  Sex: Female
  Weight: 163 kg

DRUGS (1)
  1. GEMCITABINE HCL [Suspect]
     Dosage: 2400 MG

REACTIONS (35)
  - ACTIVATED PARTIAL THROMBOPLASTIN TIME PROLONGED [None]
  - ANAEMIA [None]
  - CANDIDIASIS [None]
  - CARDIAC FAILURE [None]
  - CARDIOMEGALY [None]
  - DEHYDRATION [None]
  - DIZZINESS [None]
  - DYSPNOEA [None]
  - DYSPNOEA EXERTIONAL [None]
  - FLUID OVERLOAD [None]
  - GENERAL PHYSICAL HEALTH DETERIORATION [None]
  - HYPERKALAEMIA [None]
  - HYPERPHOSPHATAEMIA [None]
  - HYPOALBUMINAEMIA [None]
  - HYPOCALCAEMIA [None]
  - HYPOMAGNESAEMIA [None]
  - HYPOTENSION [None]
  - HYPOXIA [None]
  - INTERNATIONAL NORMALISED RATIO INCREASED [None]
  - MYOGLOBIN BLOOD INCREASED [None]
  - PETECHIAE [None]
  - PULMONARY HYPERTENSION [None]
  - PULMONARY VASCULAR DISORDER [None]
  - PURPURA [None]
  - PYREXIA [None]
  - RASH [None]
  - REFUSAL OF TREATMENT BY RELATIVE [None]
  - RENAL COLIC [None]
  - RENAL FAILURE [None]
  - RENAL VESSEL DISORDER [None]
  - RESPIRATORY DISTRESS [None]
  - SKIN EXFOLIATION [None]
  - THROMBOCYTOPENIA [None]
  - TRANSAMINASES INCREASED [None]
  - VASCULAR CALCIFICATION [None]
